FAERS Safety Report 14842999 (Version 2)
Quarter: 2018Q3

REPORT INFORMATION
  Report Type: Spontaneous
  Country: JP (occurrence: JP)
  Receive Date: 20180503
  Receipt Date: 20180703
  Transmission Date: 20181010
  Serious: Yes (Hospitalization)
  Sender: FDA-Public Use
  Company Number: JP-ASTRAZENECA-2018SE57059

PATIENT
  Age: 70 Year
  Sex: Male

DRUGS (14)
  1. OMALIZUMAB. [Concomitant]
     Active Substance: OMALIZUMAB
     Dosage: DOSE UNKNOWN, EVERY FOUR WEEKS
     Route: 058
     Dates: start: 201302
  2. MONTELUKAST [Concomitant]
     Active Substance: MONTELUKAST SODIUM
     Dosage: BEFORE BEDTIME
     Route: 048
  3. PREDNISOLONE. [Concomitant]
     Active Substance: PREDNISOLONE
     Dosage: AFTER BREAKFAST
     Route: 048
  4. METFORMIN HYDROCHLORIDE. [Concomitant]
     Active Substance: METFORMIN HYDROCHLORIDE
     Dosage: AFTER EACH MEAL
     Route: 048
  5. PREDNISOLONE. [Concomitant]
     Active Substance: PREDNISOLONE
     Route: 048
  6. PREDNISOLONE. [Concomitant]
     Active Substance: PREDNISOLONE
     Route: 048
  7. PREDNISOLONE. [Concomitant]
     Active Substance: PREDNISOLONE
     Route: 048
  8. FLUTICASONE. [Concomitant]
     Active Substance: FLUTICASONE
     Route: 055
  9. VILDAGLIPTIN [Concomitant]
     Active Substance: VILDAGLIPTIN
     Dosage: AFTER BREAKFAST AND EVENING MEAL
     Route: 048
  10. SALMETEROL XINAFOATE [Concomitant]
     Active Substance: SALMETEROL XINAFOATE
     Route: 055
  11. THEOPHYLLINE [Concomitant]
     Active Substance: THEOPHYLLINE ANHYDROUS
     Dosage: AFTER BREAKFAST AND EVENING MEAL
     Route: 048
  12. FASENRA [Suspect]
     Active Substance: BENRALIZUMAB
     Indication: ASTHMA
     Dosage: 30.0MG ONCE/SINGLE ADMINISTRATION
     Route: 058
     Dates: start: 20180329, end: 20180426
  13. TIOTROPIUM BROMIDE HYDRATE [Concomitant]
     Route: 055
  14. INSULIN LISPRO(GENETICAL RECOMBINATION) [Concomitant]
     Dosage: BEFORE BREAKFAST, LUNCH, AND EVENING MEAL
     Route: 065

REACTIONS (1)
  - Malaise [Recovered/Resolved]

NARRATIVE: CASE EVENT DATE: 20180410
